FAERS Safety Report 4501216-6 (Version None)
Quarter: 2004Q4

REPORT INFORMATION
  Report Type: 
  Country: None (occurrence: None)
  Receive Date: 20041115
  Receipt Date: 20041102
  Transmission Date: 20050328
  Serious: Yes (Hospitalization)
  Sender: FDA-Public Use
  Company Number: PHBS2004JP14760

PATIENT
  Age: 60 Year

DRUGS (5)
  1. NEORAL [Suspect]
     Indication: PSORIASIS
     Dosage: 200 MG/DAY
     Route: 048
     Dates: start: 20000101
  2. NEORAL [Suspect]
     Dosage: 50 MG/DAY
     Route: 048
  3. CEPHARANTHIN [Concomitant]
  4. GASLON [Concomitant]
  5. COIX SEED EXTRACT [Concomitant]

REACTIONS (2)
  - EOSINOPHIL COUNT INCREASED [None]
  - WHITE BLOOD CELL COUNT INCREASED [None]
